FAERS Safety Report 8313302-3 (Version None)
Quarter: 2012Q2

REPORT INFORMATION
  Report Type: 
  Country: None (occurrence: None)
  Receive Date: 20120425
  Receipt Date: 20120425
  Transmission Date: 20120825
  Serious: Yes (Other)
  Sender: FDA-Public Use
  Company Number: None

PATIENT
  Sex: Female
  Weight: 79.3795 kg

DRUGS (2)
  1. LEXAPRO [Suspect]
     Indication: DEPRESSION
     Dosage: 5 MG 1 X DAY ORAL
     Route: 048
     Dates: start: 20120201
  2. LEXAPRO [Suspect]
     Indication: ANXIETY
     Dosage: 5 MG 1 X DAY ORAL
     Route: 048
     Dates: start: 20120201

REACTIONS (2)
  - PAIN IN EXTREMITY [None]
  - OEDEMA PERIPHERAL [None]
